FAERS Safety Report 8949448 (Version 1)
Quarter: 2012Q4

REPORT INFORMATION
  Report Type: 
  Country: US (occurrence: US)
  Receive Date: 20121206
  Receipt Date: 20121206
  Transmission Date: 20130627
  Serious: Yes (Other)
  Sender: FDA-Public Use
  Company Number: US-PFIZER INC-2012305524

PATIENT
  Age: 82 Year
  Sex: Male

DRUGS (1)
  1. CELEBREX [Suspect]
     Indication: ARTHRITIS
     Dosage: 100 mg, 1x/day
     Route: 048
     Dates: start: 20121107, end: 20121121

REACTIONS (5)
  - Blood urine present [Not Recovered/Not Resolved]
  - Urinary bladder haemorrhage [Unknown]
  - Urinary retention [Unknown]
  - Urinary bladder haemorrhage [Unknown]
  - General physical health deterioration [Not Recovered/Not Resolved]
